FAERS Safety Report 19475386 (Version 3)
Quarter: 2021Q3

REPORT INFORMATION
  Report Type: Other
  Country: US (occurrence: US)
  Receive Date: 20210630
  Receipt Date: 20210929
  Transmission Date: 20211014
  Serious: Yes (Death)
  Sender: FDA-Public Use
  Company Number: US-ROCHE-2859690

PATIENT
  Age: 60 Year
  Sex: Female

DRUGS (19)
  1. DIPHENHYDRAMINE. [Concomitant]
     Active Substance: DIPHENHYDRAMINE
  2. PROVIGIL [Concomitant]
     Active Substance: MODAFINIL
  3. SENNA [Concomitant]
     Active Substance: SENNA LEAF\SENNOSIDES\SENNOSIDES A AND B
  4. VIVELLE?DOT [Concomitant]
     Active Substance: ESTRADIOL
  5. TEMAZEPAM. [Concomitant]
     Active Substance: TEMAZEPAM
  6. FLUOXETINE [Concomitant]
     Active Substance: FLUOXETINE HYDROCHLORIDE
  7. DETROL [Concomitant]
     Active Substance: TOLTERODINE TARTRATE
  8. PREVACID [Concomitant]
     Active Substance: LANSOPRAZOLE
  9. OCREVUS [Suspect]
     Active Substance: OCRELIZUMAB
     Indication: RELAPSING MULTIPLE SCLEROSIS
     Dosage: INFUSE 600 MG, OVER AT LEAST 3.5 HOUR BY IV ROUTE, EVERY 6 MONTHS (MAXIMUM INFUSION RATE 200 ML/HR)
     Route: 042
     Dates: start: 20180325, end: 20210426
  10. COMBIGAN [Concomitant]
     Active Substance: BRIMONIDINE TARTRATE\TIMOLOL MALEATE
  11. MIRALAX [Concomitant]
     Active Substance: POLYETHYLENE GLYCOL 3350
  12. BACLOFEN. [Concomitant]
     Active Substance: BACLOFEN
  13. GABAPENTIN. [Concomitant]
     Active Substance: GABAPENTIN
  14. AMPYRA [Concomitant]
     Active Substance: DALFAMPRIDINE
  15. VITAMIN D [Concomitant]
     Active Substance: VITAMIN D NOS
  16. WELLBUTRIN XL [Concomitant]
     Active Substance: BUPROPION HYDROCHLORIDE
  17. COLACE [Concomitant]
     Active Substance: DOCUSATE SODIUM
  18. TOPIRAMATE. [Concomitant]
     Active Substance: TOPIRAMATE
  19. TRAVATAN Z [Concomitant]
     Active Substance: TRAVOPROST

REACTIONS (2)
  - COVID-19 [Fatal]
  - Hypogammaglobulinaemia [Unknown]

NARRATIVE: CASE EVENT DATE: 20210512
